FAERS Safety Report 4642448-6 (Version None)
Quarter: 2005Q2

REPORT INFORMATION
  Report Type: 
  Country: None (occurrence: None)
  Receive Date: 20050422
  Receipt Date: 20050211
  Transmission Date: 20051028
  Serious: Yes (Other)
  Sender: FDA-Public Use
  Company Number: US-ROCHE-395443

PATIENT
  Age: 45 Year
  Sex: Female
  Weight: 81.6 kg

DRUGS (1)
  1. KLONOPIN [Suspect]
     Route: 048
     Dates: start: 20040115

REACTIONS (3)
  - ABORTION SPONTANEOUS [None]
  - DRUG EXPOSURE DURING PREGNANCY [None]
  - PREGNANCY [None]
